FAERS Safety Report 8496213-2 (Version None)
Quarter: 2012Q3

REPORT INFORMATION
  Report Type: 
  Country: None (occurrence: None)
  Receive Date: 20120709
  Receipt Date: 20120703
  Transmission Date: 20120928
  Serious: Yes (Death, Hospitalization, Other)
  Sender: FDA-Public Use
  Company Number: KR-JNJFOC-20120702658

PATIENT

DRUGS (2)
  1. ITRACONAZOLE [Suspect]
     Indication: SYSTEMIC CANDIDA
     Route: 065
  2. FLUCONAZOLE [Suspect]
     Indication: SYSTEMIC CANDIDA
     Route: 065

REACTIONS (5)
  - TREATMENT FAILURE [None]
  - HEPATOTOXICITY [None]
  - HYPOKALAEMIA [None]
  - DEATH [None]
  - NEPHROPATHY TOXIC [None]
